FAERS Safety Report 5358196-3 (Version None)
Quarter: 2007Q2

REPORT INFORMATION
  Report Type: 
  Country: None (occurrence: None)
  Receive Date: 20070530
  Receipt Date: 20061127
  Transmission Date: 20071010
  Serious: Yes (Other)
  Sender: FDA-Public Use
  Company Number: US200605001991

PATIENT
  Age: 37 Year
  Sex: Male
  Weight: 69.8 kg

DRUGS (3)
  1. ZYPREXA [Suspect]
     Dosage: 10 MG
     Dates: start: 19931101, end: 20011001
  2. CLOZAPINE [Concomitant]
  3. RISPERIDONE [Concomitant]

REACTIONS (4)
  - DIABETES MELLITUS [None]
  - DIABETIC KETOACIDOSIS [None]
  - HYPERGLYCAEMIA [None]
  - WEIGHT DECREASED [None]
